FAERS Safety Report 12615806 (Version 1)
Quarter: 2016Q3

REPORT INFORMATION
  Report Type: Spontaneous
  Country: ES (occurrence: ES)
  Receive Date: 20160802
  Receipt Date: 20160802
  Transmission Date: 20161109
  Serious: Yes (Hospitalization, Other)
  Sender: FDA-Public Use
  Company Number: ES-EGALET US INC-ES-2016EGA000272

PATIENT
  Age: 48 Year
  Sex: Female

DRUGS (1)
  1. OXYCODONE HYDROCHLORIDE. [Suspect]
     Active Substance: OXYCODONE HYDROCHLORIDE
     Indication: FIBROMYALGIA
     Dosage: UNK

REACTIONS (11)
  - Paranoid personality disorder [Recovered/Resolved]
  - Depression [Recovered/Resolved]
  - Patient uncooperative [Recovered/Resolved]
  - Social anxiety disorder [Recovered/Resolved]
  - Abnormal behaviour [Recovered/Resolved]
  - Delusional disorder, unspecified type [Recovered/Resolved]
  - Insomnia [Recovered/Resolved]
  - Irritability [Recovered/Resolved]
  - Suicide attempt [Recovered/Resolved]
  - Mental disorder [Recovered/Resolved]
  - Weight decreased [Recovered/Resolved]
